FAERS Safety Report 15722545 (Version 3)
Quarter: 2019Q1

REPORT INFORMATION
  Report Type: Report from Study
  Country: DE (occurrence: DE)
  Receive Date: 20181214
  Receipt Date: 20190115
  Transmission Date: 20190417
  Serious: Yes (Life-Threatening, Hospitalization, Disabling)
  Sender: FDA-Public Use
  Company Number: PHHO2018DE013060

PATIENT
  Age: 79 Year
  Sex: Female
  Weight: 84.4 kg

DRUGS (1)
  1. AMN107 [Suspect]
     Active Substance: NILOTINIB
     Indication: GASTROINTESTINAL STROMAL TUMOUR
     Dosage: 400 MG, BID
     Route: 048
     Dates: start: 20100311, end: 20181125

REACTIONS (7)
  - Cardiac failure [Recovered/Resolved]
  - Depression [Recovering/Resolving]
  - Pleural effusion [Recovered/Resolved]
  - Acute kidney injury [Recovered/Resolved]
  - Pericardial effusion [Recovered/Resolved]
  - Sepsis [Recovered/Resolved]
  - General physical health deterioration [Recovered/Resolved]

NARRATIVE: CASE EVENT DATE: 20181206
